FAERS Safety Report 15491602 (Version 7)
Quarter: 2020Q3

REPORT INFORMATION
  Report Type: Spontaneous
  Country: JP (occurrence: JP)
  Receive Date: 20181012
  Receipt Date: 20200814
  Transmission Date: 20201102
  Serious: Yes (Hospitalization, Other)
  Sender: FDA-Public Use
  Company Number: JP-ROCHE-2195052

PATIENT
  Age: 60 Year
  Sex: Male
  Weight: 53 kg

DRUGS (24)
  1. GRAN [Concomitant]
     Active Substance: FILGRASTIM
     Indication: NEUTROPENIA
     Route: 041
     Dates: start: 20180913
  2. MAGMITT [Concomitant]
     Active Substance: MAGNESIUM OXIDE
     Indication: CONSTIPATION
     Route: 048
  3. KCL CORRECTIVE [Concomitant]
     Indication: HYPOKALAEMIA
     Route: 041
     Dates: start: 20180907
  4. GEMCITABINE. [Concomitant]
     Active Substance: GEMCITABINE
  5. ACTEMRA [Suspect]
     Active Substance: TOCILIZUMAB
     Indication: CYTOKINE RELEASE SYNDROME
     Route: 042
     Dates: start: 20180913, end: 20180913
  6. URSODEOXYCHOLIC ACID [Concomitant]
     Active Substance: URSODIOL
     Indication: HEPATITIS ALCOHOLIC
     Route: 048
  7. BROTIZOLAM [Concomitant]
     Active Substance: BROTIZOLAM
     Indication: INSOMNIA
     Dosage: DOSAGE IS UNCERTAIN.
     Route: 048
  8. HALAVEN [Concomitant]
     Active Substance: ERIBULIN MESYLATE
  9. DALTEPARIN NA [Suspect]
     Active Substance: DALTEPARIN SODIUM
     Indication: TUMOUR LYSIS SYNDROME
     Route: 041
     Dates: start: 20180909, end: 20180927
  10. ANFLAVATE [Concomitant]
     Active Substance: BETAMETHASONE BUTYRATE PROPIONATE
     Indication: PRURITUS
     Dosage: PROPER QUANTITY
     Route: 062
  11. DALTEPARIN NA [Suspect]
     Active Substance: DALTEPARIN SODIUM
     Indication: DISSEMINATED INTRAVASCULAR COAGULATION
  12. FEBURIC [Suspect]
     Active Substance: FEBUXOSTAT
     Indication: PROPHYLAXIS
     Route: 048
     Dates: start: 20180907, end: 20180927
  13. FENTOS [Concomitant]
     Active Substance: FENTANYL
     Indication: PAIN
     Route: 062
     Dates: start: 20180322
  14. SODIUM PHOSPHATE [Concomitant]
     Active Substance: SODIUM PHOSPHATE
     Indication: HYPOPHOSPHATAEMIA
     Route: 041
     Dates: start: 20180913
  15. MAGNESIUM SULFATE. [Concomitant]
     Active Substance: MAGNESIUM SULFATE
     Indication: HYPOMAGNESAEMIA
     Route: 041
     Dates: start: 20180913, end: 20181016
  16. ACELIO [Concomitant]
     Active Substance: ACETAMINOPHEN
     Indication: PYREXIA
     Dosage: DOSAGE IS UNCERTAIN.
     Route: 041
     Dates: start: 20180911
  17. ABSTRAL [Suspect]
     Active Substance: FENTANYL CITRATE
     Indication: PAIN
     Route: 060
     Dates: start: 20180329
  18. SODIUM CHLORIDE. [Concomitant]
     Active Substance: SODIUM CHLORIDE
     Indication: DEHYDRATION
     Dosage: ISOTONIC
     Route: 041
     Dates: start: 20180911, end: 2018
  19. TAKECAB [Concomitant]
     Active Substance: VONOPRAZAN FUMARATE
     Indication: PROPHYLAXIS AGAINST GASTROINTESTINAL ULCER
     Dates: start: 20180907
  20. SODIUM CHLORIDE. [Concomitant]
     Active Substance: SODIUM CHLORIDE
     Indication: PROPHYLAXIS AGAINST DEHYDRATION
     Route: 041
     Dates: start: 20181008
  21. MEROPENEM. [Concomitant]
     Active Substance: MEROPENEM
     Indication: FEBRILE NEUTROPENIA
     Route: 041
     Dates: start: 20180914, end: 20181020
  22. SOLYUGEN F [Concomitant]
     Active Substance: CALCIUM CHLORIDE\POTASSIUM CHLORIDE\SODIUM ACETATE\SODIUM CHLORIDE
     Indication: DEHYDRATION
     Route: 041
     Dates: start: 20180913, end: 20181002
  23. IFOSFAMIDE. [Concomitant]
     Active Substance: IFOSFAMIDE
     Dosage: 1 MG/M^2
  24. ADRIAMYCIN [Concomitant]
     Active Substance: DOXORUBICIN HYDROCHLORIDE
     Dosage: 30 MG/M^2

REACTIONS (17)
  - Upper respiratory tract infection [Recovered/Resolved]
  - Lipase increased [Recovered/Resolved]
  - Pancreatic enzymes increased [Recovered/Resolved]
  - Cholangitis acute [Recovered/Resolved]
  - Hepatic enzyme increased [Recovered/Resolved]
  - Off label use [Unknown]
  - Cholelithiasis [Unknown]
  - Malaise [Unknown]
  - Decreased appetite [Unknown]
  - Conjunctivitis [Recovered/Resolved]
  - Biliary dilatation [Unknown]
  - Pancreatic duct dilatation [Unknown]
  - Intentional product use issue [Unknown]
  - Amylase increased [Recovered/Resolved]
  - Enterococcal infection [Unknown]
  - Chest pain [Unknown]
  - Back pain [Unknown]

NARRATIVE: CASE EVENT DATE: 20180919
